FAERS Safety Report 6882171-0 (Version None)
Quarter: 2010Q3

REPORT INFORMATION
  Report Type: 
  Country: None (occurrence: None)
  Receive Date: 20100702
  Receipt Date: 20100217
  Transmission Date: 20110219
  Serious: Yes (Other)
  Sender: FDA-Public Use
  Company Number: 2010024625

PATIENT
  Age: 32 Year
  Sex: Female
  Weight: 92.5 kg

DRUGS (6)
  1. ZOLOFT [Suspect]
     Indication: PANIC DISORDER
     Dosage: 25 MG, ORAL
     Route: 048
     Dates: start: 20030101
  2. COREG [Concomitant]
  3. LISNIOPRIL (LISINOPRIL) [Concomitant]
  4. DEMADEX [Concomitant]
  5. POTASSIUM (POTASSIUM) [Concomitant]
  6. WARFARIN SODIUM [Concomitant]

REACTIONS (4)
  - CONFUSIONAL STATE [None]
  - FACIAL PAIN [None]
  - HEADACHE [None]
  - SINUSITIS [None]
